FAERS Safety Report 13922568 (Version 1)
Quarter: 2017Q3

REPORT INFORMATION
  Report Type: Other
  Country: CA (occurrence: CA)
  Receive Date: 20170830
  Receipt Date: 20170830
  Transmission Date: 20171127
  Serious: Yes (Hospitalization, Other)
  Sender: FDA-Public Use
  Company Number: CA-UNITED THERAPEUTICS-UNT-2017-011389

PATIENT
  Age: 3 Year
  Sex: Female

DRUGS (7)
  1. UNITUXIN [Suspect]
     Active Substance: DINUTUXIMAB
     Indication: NEUROBLASTOMA
     Dosage: 17.5 MG/M2
     Route: 041
     Dates: start: 20170724, end: 20170725
  2. SARGRAMOSTIM [Suspect]
     Active Substance: SARGRAMOSTIM
     Indication: IMMUNOCHEMOTHERAPY
     Dosage: 165 ?G, QD
     Route: 058
     Dates: start: 20170721, end: 20170725
  3. ACETAMINOPHEN. [Concomitant]
     Active Substance: ACETAMINOPHEN
     Indication: PREMEDICATION
     Dosage: 150 MG, QD
     Route: 048
     Dates: start: 20170724, end: 20170725
  4. LACTULOSE. [Concomitant]
     Active Substance: LACTULOSE
     Indication: CONSTIPATION
     Dosage: 10 MG, QD
     Route: 048
  5. POLYETHYLENE GLYCOL [Concomitant]
     Active Substance: POLYETHYLENE GLYCOLS
     Indication: CONSTIPATION
     Dosage: 17 G, QD
     Route: 048
  6. MORPHINE [Concomitant]
     Active Substance: MORPHINE
     Indication: ANALGESIC THERAPY
     Dosage: 30 ?G/KG, CONTINUING
     Dates: start: 20170724, end: 20170725
  7. DIPHENHYDRAMINE. [Concomitant]
     Active Substance: DIPHENHYDRAMINE
     Indication: PROPHYLAXIS
     Dosage: 15 MG, Q6H
     Route: 042
     Dates: start: 20170724, end: 20170725

REACTIONS (7)
  - Renal impairment [Recovered/Resolved]
  - Pulse abnormal [Recovered/Resolved]
  - Oxygen saturation decreased [Recovered/Resolved]
  - Hypotension [Recovered/Resolved]
  - Blood creatinine increased [Recovered/Resolved]
  - Hypophagia [Unknown]
  - Pyrexia [Recovered/Resolved]

NARRATIVE: CASE EVENT DATE: 201707
